FAERS Safety Report 8784758 (Version 1)
Quarter: 2012Q4

REPORT INFORMATION
  Report Type: Report from Study
  Country: JP (occurrence: JP)
  Receive Date: 20120914
  Receipt Date: 20120914
  Transmission Date: 20130627
  Serious: Yes (Other)
  Sender: FDA-Public Use
  Company Number: JP-VERTEX PHARMACEUTICAL INC.-AE-2012-005187

PATIENT
  Age: 63 Year
  Sex: Female

DRUGS (14)
  1. VX-950 [Suspect]
     Indication: HEPATITIS C
     Dosage: 2250 mg, qd
     Route: 048
     Dates: start: 20120202, end: 20120314
  2. VX-950 [Suspect]
     Dosage: 1500 mg, qd
     Route: 048
     Dates: start: 20120315
  3. VX-950 [Suspect]
     Dosage: 1000 mg, qd
     Route: 048
     Dates: start: 20120329, end: 20120404
  4. VX-950 [Suspect]
     Dosage: 500 mg, qd
     Route: 048
     Dates: start: 20120405, end: 20120411
  5. VX-950 [Suspect]
     Dosage: 250 mg, qd
     Route: 048
     Dates: start: 20120412, end: 20120425
  6. VX-950 [Suspect]
     Dosage: UNK
  7. PEGINTRON                          /01543001/ [Suspect]
     Indication: HEPATITIS C
     Dosage: 1.5 ?g/kg, UNK
     Route: 058
     Dates: start: 20120202, end: 20120314
  8. PEGINTRON                          /01543001/ [Suspect]
     Dosage: 1.2 ?g/kg, UNK
     Route: 058
     Dates: start: 20120315
  9. PEGINTRON                          /01543001/ [Suspect]
     Dosage: 1.5 ?g/kg, UNK
     Route: 058
     Dates: end: 20120404
  10. PEGINTRON                          /01543001/ [Suspect]
     Dosage: 0.7 ?g/kg, UNK
     Route: 058
     Dates: start: 20120405, end: 20120425
  11. PEGINTRON                          /01543001/ [Suspect]
     Dosage: 1.5 ?g/kg, UNK
     Route: 058
     Dates: start: 20120426
  12. REBETOL [Suspect]
     Indication: HEPATITIS C
     Dosage: 800 mg, qd
     Route: 048
     Dates: start: 20120202, end: 20120216
  13. REBETOL [Suspect]
     Dosage: 400 mg, qd
     Route: 048
     Dates: start: 20120217, end: 20120222
  14. REBETOL [Suspect]
     Dosage: 200 mg, qd
     Route: 048
     Dates: start: 20120223

REACTIONS (2)
  - White blood cell count decreased [Recovered/Resolved]
  - Haemoglobin decreased [Recovered/Resolved]
